FAERS Safety Report 16158224 (Version 1)
Quarter: 2019Q2

REPORT INFORMATION
  Report Type: Spontaneous
  Country: US (occurrence: US)
  Receive Date: 20190301
  Receipt Date: 20190301
  Transmission Date: 20190711
  Serious: No
  Sender: FDA-Public Use
  Company Number: None

PATIENT
  Age: 77 Year
  Sex: Female

DRUGS (3)
  1. SILDENAFIL TAB 20 MG [Suspect]
     Active Substance: SILDENAFIL
     Route: 048
     Dates: start: 201803
  2. LOSARTAN. [Concomitant]
     Active Substance: LOSARTAN
  3. BUMETANIDE. [Concomitant]
     Active Substance: BUMETANIDE

REACTIONS (1)
  - Blood pressure decreased [None]

NARRATIVE: CASE EVENT DATE: 20190301
